FAERS Safety Report 13306192 (Version 1)
Quarter: 2017Q1

REPORT INFORMATION
  Report Type: Report from Study
  Country: US (occurrence: US)
  Receive Date: 20170308
  Receipt Date: 20170308
  Transmission Date: 20170428
  Serious: Yes (Other)
  Sender: FDA-Public Use
  Company Number: US-AMGEN-USASL2017030223

PATIENT
  Age: 68 Year
  Sex: Female

DRUGS (2)
  1. BLINCYTO [Suspect]
     Active Substance: BLINATUMOMAB
     Indication: ACUTE LYMPHOCYTIC LEUKAEMIA
     Dosage: UNK
     Route: 065
     Dates: start: 2016
  2. TASIGNA [Concomitant]
     Active Substance: NILOTINIB
     Dosage: UNK

REACTIONS (2)
  - Cognitive disorder [Unknown]
  - Off label use [Unknown]
